FAERS Safety Report 6795183-2 (Version None)
Quarter: 2010Q2

REPORT INFORMATION
  Report Type: 
  Country: None (occurrence: None)
  Receive Date: 20100625
  Receipt Date: 20100415
  Transmission Date: 20101027
  Serious: Yes (Hospitalization, Other)
  Sender: FDA-Public Use
  Company Number: JP-ROCHE-710696

PATIENT
  Age: 84 Year
  Sex: Female
  Weight: 44.4 kg

DRUGS (5)
  1. AVASTIN [Suspect]
     Indication: COLON CANCER
     Route: 041
     Dates: start: 20090706, end: 20100331
  2. ELPLAT [Concomitant]
     Dosage: DOSAGE UNCERTAIN
     Route: 041
  3. FLUOROURACIL [Concomitant]
     Dosage: DOSAGE UNCERTAIN
     Route: 040
  4. FLUOROURACIL [Concomitant]
     Dosage: DOSAGE UNCERTAIN
     Route: 041
  5. ISOVORIN [Concomitant]
     Dosage: DOSAGE UNCERTAIN
     Route: 041

REACTIONS (2)
  - MYOCARDIAL INFARCTION [None]
  - PNEUMOTHORAX [None]
